FAERS Safety Report 5257066-9 (Version None)
Quarter: 2007Q1

REPORT INFORMATION
  Report Type: 
  Country: None (occurrence: None)
  Receive Date: 20070307
  Receipt Date: 20070226
  Transmission Date: 20070707
  Serious: Yes (Other)
  Sender: FDA-Public Use
  Company Number: US-AVENTIS-200711307US

PATIENT
  Sex: Female

DRUGS (4)
  1. LOVENOX [Suspect]
     Dates: start: 20070131
  2. LOVENOX [Suspect]
     Dosage: DOSE: UNK
     Dates: end: 20070225
  3. AZULFIDINE [Concomitant]
     Dosage: DOSE: UNK
  4. PREDNISONE [Concomitant]

REACTIONS (8)
  - DRUG INEFFECTIVE [None]
  - FEELING ABNORMAL [None]
  - OEDEMA PERIPHERAL [None]
  - PAIN [None]
  - PHOTOPSIA [None]
  - SENSATION OF PRESSURE [None]
  - VISION BLURRED [None]
  - VITREOUS DETACHMENT [None]
